FAERS Safety Report 22928120 (Version 3)
Quarter: 2024Q1

REPORT INFORMATION
  Report Type: Spontaneous
  Country: US (occurrence: US)
  Receive Date: 20230911
  Receipt Date: 20240202
  Transmission Date: 20240409
  Serious: No
  Sender: FDA-Public Use
  Company Number: US-GLAXOSMITHKLINE-US2023121597

PATIENT
  Sex: Female
  Weight: 75.3 kg

DRUGS (4)
  1. ZEJULA [Suspect]
     Active Substance: NIRAPARIB
     Indication: Genital neoplasm malignant female
     Dosage: 200 MG, QD
     Dates: start: 20230808
  2. ZEJULA [Suspect]
     Active Substance: NIRAPARIB
     Dosage: 200 MG, QD
     Route: 048
  3. ZEJULA [Suspect]
     Active Substance: NIRAPARIB
     Indication: Genital neoplasm malignant female
     Dosage: 200 MG, QD
     Dates: start: 20230808
  4. MIRALAX [Concomitant]
     Active Substance: POLYETHYLENE GLYCOL 3350
     Indication: Product used for unknown indication
     Dosage: UNK

REACTIONS (8)
  - Nausea [Unknown]
  - Swelling [Unknown]
  - Pain in extremity [Unknown]
  - Muscle spasms [Unknown]
  - Breast swelling [Recovered/Resolved]
  - Breast pain [Recovered/Resolved]
  - Muscle tightness [Recovered/Resolved]
  - Blood glucose increased [Unknown]
